FAERS Safety Report 8965009 (Version 2)
Quarter: 2013Q1

REPORT INFORMATION
  Report Type: Spontaneous
  Country: US (occurrence: US)
  Receive Date: 20121213
  Receipt Date: 20130305
  Transmission Date: 20140127
  Serious: Yes (Disabling)
  Sender: FDA-Public Use
  Company Number: US-BRISTOL-MYERS SQUIBB COMPANY-17173220

PATIENT
  Age: 16 Year
  Sex: Female

DRUGS (4)
  1. ABILIFY DISCMELT TABS [Suspect]
     Indication: PSYCHOTIC DISORDER
     Route: 048
     Dates: start: 20121118, end: 20121128
  2. ABILIFY DISCMELT TABS [Suspect]
     Indication: BIPOLAR I DISORDER
     Route: 048
     Dates: start: 20121118, end: 20121128
  3. GEODON [Concomitant]
     Dates: start: 20110921
  4. LAMICTAL [Concomitant]
     Dates: start: 20120814

REACTIONS (1)
  - Bipolar disorder [Recovering/Resolving]
